FAERS Safety Report 5082220-9 (Version None)
Quarter: 2006Q3

REPORT INFORMATION
  Report Type: 
  Country: None (occurrence: None)
  Receive Date: 20060815
  Receipt Date: 20060815
  Transmission Date: 20061208
  Serious: Yes (Hospitalization)
  Sender: FDA-Public Use
  Company Number: None

PATIENT
  Age: 73 Year
  Sex: Male
  Weight: 86.2 kg

DRUGS (7)
  1. COUMADIN [Suspect]
     Dosage: 2.5MG QD, BY MOUTH
     Route: 048
     Dates: start: 20031104, end: 20060328
  2. DIGOXIN [Concomitant]
  3. VITAMIN D [Concomitant]
  4. ALENDRONATE NA [Concomitant]
  5. FUROSEMIDE [Concomitant]
  6. PRILOSEC [Concomitant]
  7. LISINOPRIL [Concomitant]

REACTIONS (1)
  - INTERNATIONAL NORMALISED RATIO INCREASED [None]
